FAERS Safety Report 24531736 (Version 2)
Quarter: 2025Q1

REPORT INFORMATION
  Report Type: Spontaneous
  Country: GB (occurrence: GB)
  Receive Date: 20241022
  Receipt Date: 20250214
  Transmission Date: 20250409
  Serious: Yes (Hospitalization, Other)
  Sender: VALIDUS
  Company Number: GB-VALIDUS PHARMACEUTICALS LLC-GB-VDP-2024-019438

PATIENT

DRUGS (41)
  1. FUROSEMIDE [Suspect]
     Active Substance: FUROSEMIDE
     Indication: Pleural effusion
     Dosage: 40 MG, QD
     Route: 065
     Dates: start: 20160402
  2. FUROSEMIDE [Suspect]
     Active Substance: FUROSEMIDE
     Indication: Pulmonary oedema
     Dosage: 40 MG, QD
     Route: 065
     Dates: start: 20160402
  3. FUROSEMIDE [Suspect]
     Active Substance: FUROSEMIDE
     Indication: Left ventricular dysfunction
     Dosage: 40 MG, QD
     Route: 065
     Dates: start: 20160402
  4. FUROSEMIDE [Suspect]
     Active Substance: FUROSEMIDE
     Indication: Lung disorder
     Dosage: 80 MG, QD
     Route: 048
     Dates: start: 20160402
  5. ISOSORBIDE MONONITRATE [Suspect]
     Active Substance: ISOSORBIDE MONONITRATE
     Indication: Angina pectoris
     Dosage: 10 MG, QD
     Route: 048
     Dates: start: 20160205
  6. QUETIAPINE FUMARATE [Suspect]
     Active Substance: QUETIAPINE FUMARATE
     Indication: Depression
     Route: 048
     Dates: start: 20150826
  7. RAMIPRIL [Suspect]
     Active Substance: RAMIPRIL
     Indication: Cardiac failure
     Dosage: 1.25 MG, QD
     Route: 048
     Dates: start: 20130813, end: 20160629
  8. RAMIPRIL [Suspect]
     Active Substance: RAMIPRIL
     Dosage: 1 MG, QD
     Route: 048
     Dates: start: 20130813, end: 20160629
  9. CARVEDILOL [Suspect]
     Active Substance: CARVEDILOL
     Indication: Angina pectoris
     Dosage: 50 MG, QD (25 MG, BID)
     Route: 065
     Dates: start: 20110616
  10. CARVEDILOL [Suspect]
     Active Substance: CARVEDILOL
     Dosage: 25 MG, QD
     Route: 065
     Dates: start: 20110616
  11. CARVEDILOL [Suspect]
     Active Substance: CARVEDILOL
     Dosage: 50 MG, QD (25 MG, BID)
     Route: 065
     Dates: start: 20110616
  12. CARVEDILOL [Suspect]
     Active Substance: CARVEDILOL
     Dosage: 50 MG, QD(25 MG, BID)
     Route: 065
     Dates: start: 20110616
  13. OMEPRAZOLE [Suspect]
     Active Substance: OMEPRAZOLE
     Indication: Duodenal ulcer
     Route: 048
     Dates: start: 20140116
  14. OMEPRAZOLE [Suspect]
     Active Substance: OMEPRAZOLE
     Indication: Dyspepsia
     Route: 048
     Dates: start: 20140116
  15. BOCOCIZUMAB [Suspect]
     Active Substance: BOCOCIZUMAB
     Indication: Angina pectoris
     Route: 058
  16. BOCOCIZUMAB [Suspect]
     Active Substance: BOCOCIZUMAB
     Indication: Cardiovascular disorder
     Dosage: 50 MG, QD (25 MG, BID)
     Route: 058
     Dates: start: 20110616
  17. BOCOCIZUMAB [Suspect]
     Active Substance: BOCOCIZUMAB
     Dosage: 150 MG, Q2WEEKS, FREQUENCY - 2 WEEKS, E
     Route: 058
     Dates: start: 20150908, end: 20161101
  18. IVABRADINE HYDROCHLORIDE [Suspect]
     Active Substance: IVABRADINE HYDROCHLORIDE
     Indication: Angina pectoris
     Dosage: 10 MG, QD (5 MG, BID, 12 HOURLY)
     Route: 065
     Dates: start: 20150211
  19. IVABRADINE HYDROCHLORIDE [Suspect]
     Active Substance: IVABRADINE HYDROCHLORIDE
     Route: 065
  20. IVABRADINE HYDROCHLORIDE [Suspect]
     Active Substance: IVABRADINE HYDROCHLORIDE
     Dosage: 5 MG, QD
     Route: 065
     Dates: start: 20150211
  21. IVABRADINE [Suspect]
     Active Substance: IVABRADINE
     Indication: Angina pectoris
     Dosage: 10 MG, QD (5 MG, BID)
     Route: 065
     Dates: start: 20150211
  22. IVABRADINE [Suspect]
     Active Substance: IVABRADINE
     Route: 065
     Dates: start: 20150211
  23. IVABRADINE [Suspect]
     Active Substance: IVABRADINE
     Dosage: 5 MG, BID
     Route: 065
     Dates: start: 20150211
  24. IVABRADINE [Suspect]
     Active Substance: IVABRADINE
     Dosage: 5 MG, QD
     Route: 065
     Dates: start: 20150211
  25. BETAMETHASONE DIPROPIONATE\CLOTRIMAZOLE [Concomitant]
     Active Substance: BETAMETHASONE DIPROPIONATE\CLOTRIMAZOLE
     Indication: Psoriasis
     Route: 065
     Dates: start: 20150626
  26. OMEPRAZOLE [Concomitant]
     Active Substance: OMEPRAZOLE
     Indication: Dyspepsia
     Route: 065
     Dates: start: 20140116
  27. IVABRADINE HCL [Concomitant]
     Indication: Angina pectoris
     Route: 065
     Dates: start: 20150211
  28. NITROGLYCERIN [Concomitant]
     Active Substance: NITROGLYCERIN
     Indication: Cardiovascular disorder
     Route: 065
     Dates: start: 20130902
  29. NITROGLYCERIN [Concomitant]
     Active Substance: NITROGLYCERIN
     Indication: Pain
  30. FOLIC ACID [Concomitant]
     Active Substance: FOLIC ACID
     Indication: Anaemia
     Route: 065
     Dates: start: 20131211
  31. METHOTREXATE [Concomitant]
     Active Substance: METHOTREXATE
     Indication: Psoriasis
     Route: 065
     Dates: start: 20150727
  32. ASPIRIN [Concomitant]
     Active Substance: ASPIRIN
     Indication: Cardiovascular disorder
     Route: 065
     Dates: start: 20130708
  33. CODEINE PHOSPHATE [Concomitant]
     Active Substance: CODEINE PHOSPHATE
     Indication: Product used for unknown indication
     Route: 065
  34. ACETAMINOPHEN\CODEINE PHOSPHATE [Concomitant]
     Active Substance: ACETAMINOPHEN\CODEINE PHOSPHATE
     Indication: Pain in extremity
     Route: 065
     Dates: start: 20110616
  35. ACETAMINOPHEN [Concomitant]
     Active Substance: ACETAMINOPHEN
     Indication: Pain in extremity
     Route: 065
     Dates: start: 20110616
  36. SACUBITRIL [Concomitant]
     Active Substance: SACUBITRIL
     Indication: Left ventricular dysfunction
     Route: 065
     Dates: start: 20160601
  37. IVABRADINE HCL [Concomitant]
     Indication: Angina pectoris
     Route: 065
  38. QUETIAPINE FUMARATE [Concomitant]
     Active Substance: QUETIAPINE FUMARATE
     Indication: Depression
     Route: 065
     Dates: start: 20150826
  39. ENTRESTO [Concomitant]
     Active Substance: SACUBITRIL\VALSARTAN
     Indication: Left ventricular dysfunction
     Route: 065
  40. SERTRALINE HYDROCHLORIDE [Concomitant]
     Active Substance: SERTRALINE HYDROCHLORIDE
     Indication: Depression
     Route: 065
     Dates: start: 20110616
  41. ATORVASTATIN [Concomitant]
     Active Substance: ATORVASTATIN
     Indication: Cardiovascular disorder
     Route: 065
     Dates: start: 20130708

REACTIONS (12)
  - Oedema peripheral [Not Recovered/Not Resolved]
  - Pulmonary oedema [Unknown]
  - Cardiac failure [Unknown]
  - Psoriasis [Unknown]
  - Fluid retention [Unknown]
  - Presyncope [Unknown]
  - Ventricular dysfunction [Unknown]
  - Angina pectoris [Unknown]
  - Drug interaction [Recovered/Resolved]
  - Contusion [Recovered/Resolved]
  - Hypotension [Recovered/Resolved]
  - Anaemia [Unknown]

NARRATIVE: CASE EVENT DATE: 20130919
